FAERS Safety Report 5786852-1 (Version None)
Quarter: 2008Q2

REPORT INFORMATION
  Report Type: 
  Country: None (occurrence: None)
  Receive Date: 20080620
  Receipt Date: 20080611
  Transmission Date: 20081010
  Serious: Yes (Congenital Anomaly)
  Sender: FDA-Public Use
  Company Number: S08-USA-01791-02

PATIENT
  Sex: Male
  Weight: 3.9123 kg

DRUGS (4)
  1. LEXAPRO [Suspect]
     Dosage: 20 MG QD TRANSPLACENTAL
     Route: 064
     Dates: start: 20070801, end: 20070101
  2. LEXAPRO [Suspect]
     Dates: start: 20070101, end: 20080101
  3. LEXAPRO [Suspect]
     Dosage: 2.5 MG QD TRANSPLACENTAL
     Route: 064
     Dates: start: 20080101, end: 20080403
  4. LEXAPRO [Suspect]
     Dosage: 2.5 MG QD BF
     Dates: start: 20080404

REACTIONS (4)
  - CAESAREAN SECTION [None]
  - CRANIOSYNOSTOSIS [None]
  - DRUG EXPOSURE VIA BREAST MILK [None]
  - MATERNAL DRUGS AFFECTING FOETUS [None]
